FAERS Safety Report 11130144 (Version 1)
Quarter: 2015Q2

REPORT INFORMATION
  Report Type: Spontaneous
  Country: US (occurrence: US)
  Receive Date: 20150521
  Receipt Date: 20150521
  Transmission Date: 20150821
  Serious: Yes (Other)
  Sender: FDA-Public Use
  Company Number: PHHY2015US056359

PATIENT
  Sex: Male

DRUGS (13)
  1. LANSOPRAZOLE. [Suspect]
     Active Substance: LANSOPRAZOLE
     Indication: PRODUCT USED FOR UNKNOWN INDICATION
     Dosage: 10 ML, QD (EVERY 24 HOURS)
     Route: 048
  2. ALBUTEROL. [Suspect]
     Active Substance: ALBUTEROL
     Indication: PRODUCT USED FOR UNKNOWN INDICATION
     Dosage: 3 ML, Q8H (0.083 PERCENT)
     Route: 055
  3. BETAMETHASONE DIPROPIONATE. [Suspect]
     Active Substance: BETAMETHASONE DIPROPIONATE
     Indication: SKIN DISORDER
     Dosage: (1 APPLICATION TO THE SKIN EVERY 12 HOURS AS NEEDED)
     Route: 061
  4. CLONAZEPAM. [Suspect]
     Active Substance: CLONAZEPAM
     Indication: PRODUCT USED FOR UNKNOWN INDICATION
     Dosage: 0.5 MG, Q12H
     Route: 048
  5. ARTIFICIAL TEARS /00880201/ [Suspect]
     Active Substance: POLYVINYL ALCOHOL\POVIDONE
     Indication: PRODUCT USED FOR UNKNOWN INDICATION
     Dosage: 1 DF, QID
     Route: 047
  6. DOCUSATE [Suspect]
     Active Substance: DOCUSATE
     Indication: CONSTIPATION
     Dosage: 100 MG, Q12H
     Route: 048
  7. POLYVINYL ALCOHOL [Suspect]
     Active Substance: POLYVINYL ALCOHOL
     Indication: PRODUCT USED FOR UNKNOWN INDICATION
     Dosage: 2 GTT, Q6H
     Route: 047
  8. AMANTADINE [Suspect]
     Active Substance: AMANTADINE
     Indication: PRODUCT USED FOR UNKNOWN INDICATION
     Dosage: 100 MG, Q12H
     Route: 048
  9. BUDESONIDE. [Suspect]
     Active Substance: BUDESONIDE
     Indication: PRODUCT USED FOR UNKNOWN INDICATION
     Dosage: 1 ML, Q12H (INHALATION SUSPENSION)
     Route: 055
  10. DIAZEPAM. [Suspect]
     Active Substance: DIAZEPAM
     Indication: PRODUCT USED FOR UNKNOWN INDICATION
     Dosage: 2 MG, QD (IN THE EVENING)
     Route: 048
  11. POLYETHYLENE GLYCOL 3350. [Suspect]
     Active Substance: POLYETHYLENE GLYCOL 3350
     Indication: CONSTIPATION
     Dosage: 17 G, QD
     Route: 048
  12. LIORESAL [Suspect]
     Active Substance: BACLOFEN
     Indication: MUSCLE SPASTICITY
     Dosage: 96 UG, QD
     Route: 037
  13. GLYCOPYRROLATE. [Suspect]
     Active Substance: GLYCOPYRROLATE
     Indication: PRODUCT USED FOR UNKNOWN INDICATION
     Dosage: 1000 UG, Q12H
     Route: 048

REACTIONS (6)
  - Muscle spasticity [Recovered/Resolved]
  - Heart rate increased [Recovered/Resolved]
  - Salivary hypersecretion [Recovered/Resolved]
  - Drug withdrawal syndrome [Recovered/Resolved]
  - Body temperature increased [Recovered/Resolved]
  - Pain [Recovered/Resolved]
